FAERS Safety Report 19259730 (Version 11)
Quarter: 2025Q3

REPORT INFORMATION
  Report Type: Spontaneous
  Country: CA (occurrence: CA)
  Receive Date: 20210514
  Receipt Date: 20250924
  Transmission Date: 20251021
  Serious: Yes (Other)
  Sender: CIPHER
  Company Number: CA-CIPHER-2021-CA-001028

PATIENT
  Age: 50 Year
  Sex: Female
  Weight: 92 kg

DRUGS (12)
  1. TRAMADOL HYDROCHLORIDE [Suspect]
     Active Substance: TRAMADOL HYDROCHLORIDE
     Indication: Back pain
     Route: 065
  2. GABAPENTIN [Suspect]
     Active Substance: GABAPENTIN
     Indication: Back pain
  3. IBUPROFEN [Concomitant]
     Active Substance: IBUPROFEN
     Indication: Product used for unknown indication
  4. MOTRIN [Concomitant]
     Active Substance: IBUPROFEN
     Indication: Product used for unknown indication
  5. ACTEMRA [Suspect]
     Active Substance: TOCILIZUMAB
     Indication: Rheumatoid arthritis
     Route: 042
  6. BENADRYL [Concomitant]
     Active Substance: DIPHENHYDRAMINE HYDROCHLORIDE
     Indication: Premedication
     Route: 048
     Dates: start: 20190321, end: 20190423
  7. BIOTIN [Concomitant]
     Active Substance: BIOTIN
     Indication: Product used for unknown indication
  8. IRBESARTAN [Concomitant]
     Active Substance: IRBESARTAN
     Indication: Product used for unknown indication
  9. METHOTREXATE [Concomitant]
     Active Substance: METHOTREXATE
     Indication: Product used for unknown indication
  10. METHYLPREDNISOLONE SODIUM SUCCINATE [Concomitant]
     Active Substance: METHYLPREDNISOLONE SODIUM SUCCINATE
     Indication: Premedication
     Route: 042
     Dates: start: 20230313, end: 20230612
  11. PREDNISONE [Concomitant]
     Active Substance: PREDNISONE
     Indication: Product used for unknown indication
  12. TYLENOL 8 HR ARTHRITIS PAIN [Concomitant]
     Active Substance: ACETAMINOPHEN
     Indication: Product used for unknown indication

REACTIONS (66)
  - Headache [Unknown]
  - Infection [Unknown]
  - Influenza [Unknown]
  - Infusion related reaction [Unknown]
  - Nasal disorder [Unknown]
  - Nasopharyngitis [Unknown]
  - Nausea [Unknown]
  - Oxygen saturation decreased [Unknown]
  - Pain [Unknown]
  - Pruritus [Unknown]
  - Abdominal pain [Unknown]
  - Skin laceration [Unknown]
  - Weight decreased [Unknown]
  - Cold sweat [Unknown]
  - Spinal stenosis [Unknown]
  - Spondylitis [Unknown]
  - Back pain [Unknown]
  - Drug ineffective [Unknown]
  - Gait disturbance [Unknown]
  - Insomnia [Unknown]
  - Lower respiratory tract infection [Unknown]
  - Arthralgia [Unknown]
  - Pain in extremity [Unknown]
  - Spinal osteoarthritis [Unknown]
  - Heart rate increased [Unknown]
  - Heart rate decreased [Unknown]
  - Urticaria [Unknown]
  - Intentional dose omission [Unknown]
  - Limb discomfort [Unknown]
  - Asthenia [Unknown]
  - Paraesthesia [Unknown]
  - Blood pressure diastolic abnormal [Unknown]
  - Blood pressure diastolic increased [Unknown]
  - Neck pain [Unknown]
  - Pain [Unknown]
  - Spinal pain [Unknown]
  - Weight increased [Unknown]
  - Musculoskeletal discomfort [Unknown]
  - Blood pressure increased [Unknown]
  - Arthralgia [Unknown]
  - Asthenia [Unknown]
  - Blood pressure diastolic abnormal [Unknown]
  - Blood pressure increased [Unknown]
  - Blood pressure systolic increased [Unknown]
  - Contusion [Unknown]
  - Drug ineffective [Unknown]
  - Fatigue [Unknown]
  - Heart rate decreased [Unknown]
  - Heart rate increased [Unknown]
  - Blood pressure systolic increased [Unknown]
  - Intentional dose omission [Unknown]
  - Limb discomfort [Unknown]
  - Lower respiratory tract infection [Unknown]
  - Nasal disorder [Unknown]
  - Nasopharyngitis [Unknown]
  - Oxygen saturation decreased [Unknown]
  - Paraesthesia [Unknown]
  - Pruritus [Unknown]
  - Skin laceration [Unknown]
  - Spinal osteoarthritis [Unknown]
  - Contusion [Unknown]
  - Spondylitis [Unknown]
  - Urticaria [Unknown]
  - Weight decreased [Unknown]
  - Dizziness [Unknown]
  - Fatigue [Unknown]

NARRATIVE: CASE EVENT DATE: 20180913
